FAERS Safety Report 14983694 (Version 1)
Quarter: 2018Q2

REPORT INFORMATION
  Report Type: Spontaneous
  Country: US (occurrence: US)
  Receive Date: 20180517
  Receipt Date: 20180517
  Transmission Date: 20180711
  Serious: Yes (Death, Other)
  Sender: FDA-Public Use
  Company Number: None

PATIENT
  Age: 45 Year
  Sex: Female
  Weight: 80.55 kg

DRUGS (19)
  1. CELEXA [Concomitant]
     Active Substance: CITALOPRAM HYDROBROMIDE
  2. FENTANYL. [Concomitant]
     Active Substance: FENTANYL
  3. HUMALOG [Concomitant]
     Active Substance: INSULIN LISPRO
  4. OXYCODONE [Concomitant]
     Active Substance: OXYCODONE
  5. CAPECITABINE. [Suspect]
     Active Substance: CAPECITABINE
     Indication: BREAST CANCER
     Route: 048
     Dates: start: 20170331, end: 20180516
  6. GABAPENTIN. [Concomitant]
     Active Substance: GABAPENTIN
  7. ADVIL [Concomitant]
     Active Substance: IBUPROFEN
  8. REGLAN [Concomitant]
     Active Substance: METOCLOPRAMIDE HYDROCHLORIDE
  9. MIRTAZAPINE. [Concomitant]
     Active Substance: MIRTAZAPINE
  10. ALPRAZOLAM. [Concomitant]
     Active Substance: ALPRAZOLAM
  11. HYDROXYZINE [Concomitant]
     Active Substance: HYDROXYZINE HYDROCHLORIDE
  12. LANTUS [Concomitant]
     Active Substance: INSULIN GLARGINE
  13. ONDANSETRON [Concomitant]
     Active Substance: ONDANSETRON
  14. DEXAMETHASONE. [Concomitant]
     Active Substance: DEXAMETHASONE
  15. MIRALAX [Concomitant]
     Active Substance: POLYETHYLENE GLYCOL 3350
  16. SENNA [Concomitant]
     Active Substance: SENNA LEAF\SENNOSIDES\SENNOSIDES A AND B
  17. TYKERB [Suspect]
     Active Substance: LAPATINIB DITOSYLATE
     Indication: BREAST CANCER
     Route: 048
     Dates: start: 20170601, end: 20180516
  18. FUROSEMIDE. [Concomitant]
     Active Substance: FUROSEMIDE
  19. PROCHLORPERAZINE. [Concomitant]
     Active Substance: PROCHLORPERAZINE

REACTIONS (1)
  - Disease progression [None]
